FAERS Safety Report 24686957 (Version 2)
Quarter: 2024Q4

REPORT INFORMATION
  Report Type: Spontaneous
  Country: JP (occurrence: JP)
  Receive Date: 20241202
  Receipt Date: 20241216
  Transmission Date: 20250115
  Serious: Yes (Death, Other)
  Sender: OTSUKA
  Company Number: JP-OTSUKA-2024_032059

PATIENT
  Age: 79 Year
  Sex: Male

DRUGS (4)
  1. REXULTI [Suspect]
     Active Substance: BREXPIPRAZOLE
     Indication: Hallucination
     Dosage: 0.5 MG/DAY
     Route: 048
     Dates: start: 20231121, end: 20231225
  2. REXULTI [Suspect]
     Active Substance: BREXPIPRAZOLE
     Indication: Hallucination
     Dosage: 1 MG/DAY
     Route: 048
     Dates: start: 20231226, end: 20240429
  3. REXULTI [Suspect]
     Active Substance: BREXPIPRAZOLE
     Indication: Hallucination
     Dosage: 2 MG/DAY
     Route: 048
     Dates: start: 20240430, end: 20240813
  4. DONEPEZIL HYDROCHLORIDE [Concomitant]
     Active Substance: DONEPEZIL HYDROCHLORIDE
     Indication: Product used for unknown indication
     Dosage: 5 MG/DAY
     Route: 048
     Dates: start: 20230425, end: 20240730

REACTIONS (2)
  - Death [Fatal]
  - Off label use [Unknown]

NARRATIVE: CASE EVENT DATE: 20231121
